FAERS Safety Report 5254643-6 (Version None)
Quarter: 2007Q1

REPORT INFORMATION
  Report Type: 
  Country: None (occurrence: None)
  Receive Date: 20070302
  Receipt Date: 20070222
  Transmission Date: 20070707
  Serious: Yes (Hospitalization)
  Sender: FDA-Public Use
  Company Number: US-ABBOTT-07P-163-0360123-00

PATIENT
  Sex: Male
  Weight: 91 kg

DRUGS (4)
  1. DEPAKOTE ER [Suspect]
     Indication: CONVERSION DISORDER
     Route: 048
     Dates: start: 20070218
  2. DEPAKOTE ER [Suspect]
     Indication: BIPOLAR I DISORDER
  3. LEXAPRO [Suspect]
     Indication: DRUG USE FOR UNKNOWN INDICATION
     Route: 048
     Dates: end: 20070201
  4. LORAZEPAM [Concomitant]
     Indication: CONVERSION DISORDER
     Route: 048
     Dates: start: 20070218

REACTIONS (5)
  - AGITATION [None]
  - ANGER [None]
  - CONVERSION DISORDER [None]
  - CRYING [None]
  - MENTAL DISORDER [None]
